FAERS Safety Report 6471365-4 (Version None)
Quarter: 2009Q4

REPORT INFORMATION
  Report Type: 
  Country: None (occurrence: None)
  Receive Date: 20091203
  Receipt Date: 20080221
  Transmission Date: 20100525
  Serious: Yes (Hospitalization)
  Sender: FDA-Public Use
  Company Number: TR-ELI_LILLY_AND_COMPANY-TR200802005236

PATIENT
  Age: 29 Year
  Sex: Male
  Weight: 65 kg

DRUGS (3)
  1. HUMULIN 70/30 [Suspect]
     Indication: TYPE 1 DIABETES MELLITUS
     Dosage: 30 IU, EACH MORNING
     Route: 058
  2. HUMULIN 70/30 [Suspect]
     Dosage: 20 IU, EACH EVENING
     Route: 058
  3. AZOPT [Concomitant]
     Indication: GLAUCOMA
     Dosage: UNK, 2/D
     Route: 047

REACTIONS (2)
  - EYE OPERATION [None]
  - OCULAR HYPERAEMIA [None]
